FAERS Safety Report 5017562-6 (Version None)
Quarter: 2006Q2

REPORT INFORMATION
  Report Type: 
  Country: None (occurrence: None)
  Receive Date: 20060601
  Receipt Date: 20060601
  Transmission Date: 20061013
  Serious: Yes (Hospitalization)
  Sender: FDA-Public Use
  Company Number: None

PATIENT
  Age: 61 Year
  Sex: Male
  Weight: 72.4 kg

DRUGS (7)
  1. ERLOTINIB  150MG  TABLET [Suspect]
     Indication: LUNG NEOPLASM MALIGNANT
     Dosage: 150MG PO DAILY
     Route: 048
     Dates: start: 20060316, end: 20060328
  2. GUAIFENESIN [Concomitant]
  3. TEMAZEPAM [Concomitant]
  4. CODEINE 30/APAP [Concomitant]
  5. OMEPRAZOLE [Concomitant]
  6. DICYCLOMINE [Concomitant]
  7. LOPERAMIDE [Concomitant]

REACTIONS (2)
  - DIARRHOEA [None]
  - WEIGHT DECREASED [None]
